FAERS Safety Report 7705237-1 (Version None)
Quarter: 2011Q3

REPORT INFORMATION
  Report Type: 
  Country: None (occurrence: None)
  Receive Date: 20110818
  Receipt Date: 20110802
  Transmission Date: 20111222
  Serious: Yes (Hospitalization)
  Sender: FDA-Public Use
  Company Number: 2011MA010840

PATIENT
  Age: 52 Year
  Sex: Female

DRUGS (9)
  1. ESCITALOPRAM [Suspect]
     Indication: INSOMNIA
  2. ESCITALOPRAM [Suspect]
     Indication: DEPRESSION
  3. ESCITALOPRAM [Suspect]
     Indication: ANXIETY
  4. SERTRALINE HYDROCHLORIDE [Suspect]
     Indication: INSOMNIA
  5. SERTRALINE HYDROCHLORIDE [Suspect]
     Indication: DEPRESSION
  6. SERTRALINE HYDROCHLORIDE [Suspect]
     Indication: ANXIETY
  7. FLUOXETINE [Suspect]
     Indication: DEPRESSION
  8. FLUOXETINE [Suspect]
     Indication: INSOMNIA
  9. FLUOXETINE [Suspect]
     Indication: ANXIETY

REACTIONS (10)
  - EXTRAPYRAMIDAL DISORDER [None]
  - PSYCHOMOTOR HYPERACTIVITY [None]
  - TREATMENT NONCOMPLIANCE [None]
  - ORTHOSTATIC HYPOTENSION [None]
  - BALANCE DISORDER [None]
  - MUSCLE RIGIDITY [None]
  - URINARY INCONTINENCE [None]
  - GAIT DISTURBANCE [None]
  - TREMOR [None]
  - CEREBRAL ATROPHY [None]
